FAERS Safety Report 16386518 (Version 1)
Quarter: 2019Q2

REPORT INFORMATION
  Report Type: Spontaneous
  Country: US (occurrence: US)
  Receive Date: 20190604
  Receipt Date: 20190604
  Transmission Date: 20190711
  Serious: Yes (Other)
  Sender: FDA-Public Use
  Company Number: US-PCCINC-2019-PEL-000120

PATIENT

DRUGS (1)
  1. GABLOFEN [Suspect]
     Active Substance: BACLOFEN
     Indication: MUSCLE SPASTICITY
     Dosage: 125.03 MILLIGRAM PER DAY
     Route: 037

REACTIONS (5)
  - Incision site erythema [Recovered/Resolved]
  - Incision site complication [Recovered/Resolved]
  - Headache [Recovered/Resolved]
  - Incision site pain [Not Recovered/Not Resolved]
  - Meningitis [Recovered/Resolved]

NARRATIVE: CASE EVENT DATE: 20181204
